FAERS Safety Report 7783357-3 (Version None)
Quarter: 2011Q3

REPORT INFORMATION
  Report Type: 
  Country: None (occurrence: None)
  Receive Date: 20110928
  Receipt Date: 20110913
  Transmission Date: 20111222
  Serious: Yes (Death, Hospitalization)
  Sender: FDA-Public Use
  Company Number: US-ENDO PHARMACEUTICALS INC.-BUTA20110010

PATIENT
  Sex: Male

DRUGS (4)
  1. BUTALBITAL/ACETAMINOPHEN/CAFFEINE TABLETS [Suspect]
     Indication: HEADACHE
     Dosage: UNK
     Route: 048
  2. OXYCODONE HCL AND ACETAMINOPHEN [Suspect]
     Dosage: UNK
     Route: 048
  3. FLEXERIL [Concomitant]
     Dosage: UNK
     Route: 065
  4. OXYCONTIN [Suspect]
     Dosage: UNK
     Route: 048

REACTIONS (4)
  - DEATH [None]
  - HEADACHE [None]
  - SEDATION [None]
  - CONVULSION [None]
